FAERS Safety Report 23955627 (Version 1)
Quarter: 2024Q2

REPORT INFORMATION
  Report Type: Spontaneous
  Country: US (occurrence: US)
  Receive Date: 20240610
  Receipt Date: 20240610
  Transmission Date: 20240716
  Serious: Yes (Other)
  Sender: FDA-Public Use
  Company Number: US-ORGANON-O2406USA000526

PATIENT
  Age: 15 Year
  Sex: Female

DRUGS (1)
  1. NEXPLANON [Suspect]
     Active Substance: ETONOGESTREL
     Dosage: 1 IMPLANT, IN LEFT UPPER ARM
     Route: 059
     Dates: start: 20231024

REACTIONS (3)
  - Device dislocation [Not Recovered/Not Resolved]
  - Implant site erythema [Unknown]
  - Implant site pruritus [Unknown]

NARRATIVE: CASE EVENT DATE: 20240401
